FAERS Safety Report 10140687 (Version 2)
Quarter: 2014Q2

REPORT INFORMATION
  Report Type: Report from Study
  Country: DE (occurrence: DE)
  Receive Date: 20140429
  Receipt Date: 20140521
  Transmission Date: 20141212
  Serious: Yes (Hospitalization)
  Sender: FDA-Public Use
  Company Number: DE-ABBVIE-14P-062-1228861-00

PATIENT
  Age: 16 Year
  Sex: Male

DRUGS (3)
  1. HUMIRA [Suspect]
     Indication: CROHN^S DISEASE
     Route: 058
     Dates: start: 20140304, end: 20140328
  2. CORTISONE [Concomitant]
     Indication: PRODUCT USED FOR UNKNOWN INDICATION
  3. OMEPRAZOLE [Concomitant]
     Indication: PRODUCT USED FOR UNKNOWN INDICATION

REACTIONS (4)
  - Intestinal stenosis [Unknown]
  - Abdominal pain [Not Recovered/Not Resolved]
  - Neoplasm [Not Recovered/Not Resolved]
  - Fistula [Not Recovered/Not Resolved]
